FAERS Safety Report 5227571-X (Version None)
Quarter: 2007Q1

REPORT INFORMATION
  Report Type: 
  Country: None (occurrence: None)
  Receive Date: 20070202
  Receipt Date: 20070123
  Transmission Date: 20070707
  Serious: Yes (Hospitalization, Disabling)
  Sender: FDA-Public Use
  Company Number: US-JNJFOC-20061201665

PATIENT
  Sex: Male
  Weight: 79.38 kg

DRUGS (3)
  1. MOTRIN [Suspect]
  2. MOTRIN [Suspect]
     Indication: BACK INJURY
  3. ADALAT [Suspect]
     Indication: HYPERTENSION

REACTIONS (3)
  - APPENDICECTOMY [None]
  - HYPERTENSION [None]
  - RENAL FAILURE [None]
